FAERS Safety Report 7264929-1 (Version None)
Quarter: 2011Q1

REPORT INFORMATION
  Report Type: 
  Country: None (occurrence: None)
  Receive Date: 20110131
  Receipt Date: 20101123
  Transmission Date: 20110831
  Serious: Yes (Hospitalization)
  Sender: FDA-Public Use
  Company Number: US-BAYER-201038478NA

PATIENT
  Sex: Female
  Weight: 54 kg

DRUGS (18)
  1. OCELLA [Suspect]
     Indication: ACNE
  2. YAZ [Suspect]
     Indication: ACNE
  3. CYCLOBENZAPRINE [Concomitant]
     Indication: PAIN
  4. CYMBALTA [Concomitant]
     Indication: DEPRESSION
  5. ABILIFY [Concomitant]
     Indication: DEPRESSION
  6. NEURONTIN [Concomitant]
  7. ATIVAN [Concomitant]
     Indication: ANXIETY
  8. AMOXIL [Concomitant]
  9. UNCODEABLE ^UNCLASSIFIABLE^ [Concomitant]
  10. TRAMADOL HCL [Concomitant]
  11. OXYCODONE [Concomitant]
  12. DARVOCET-N 100 [Concomitant]
     Indication: PAIN
  13. PROZAC [Concomitant]
  14. POTASSIUM [POTASSIUM] [Concomitant]
  15. YASMIN [Suspect]
     Indication: CONTRACEPTION
     Dosage: UNK
     Dates: start: 20070209, end: 20070610
  16. INDOMETHACIN [Concomitant]
  17. EFFEXOR [Concomitant]
  18. ATARAX [Concomitant]

REACTIONS (7)
  - PALPITATIONS [None]
  - DYSPNOEA [None]
  - HYPOAESTHESIA [None]
  - LOSS OF CONSCIOUSNESS [None]
  - CHEST DISCOMFORT [None]
  - NAUSEA [None]
  - PULMONARY EMBOLISM [None]
